FAERS Safety Report 4507569-7 (Version None)
Quarter: 2004Q4

REPORT INFORMATION
  Report Type: 
  Country: None (occurrence: None)
  Receive Date: 20041118
  Receipt Date: 20041117
  Transmission Date: 20050328
  Serious: Yes (Death)
  Sender: FDA-Public Use
  Company Number: ENT-2004-0206

PATIENT
  Age: 73 Year
  Sex: Male

DRUGS (1)
  1. COMTAN [Suspect]
     Dosage: 200 MG, ORAL
     Route: 048

REACTIONS (1)
  - DEATH [None]
